FAERS Safety Report 10764095 (Version 4)
Quarter: 2015Q2

REPORT INFORMATION
  Report Type: Spontaneous
  Country: ZA (occurrence: ZA)
  Receive Date: 20150204
  Receipt Date: 20150430
  Transmission Date: 20150821
  Serious: Yes (Hospitalization, Other)
  Sender: FDA-Public Use
  Company Number: ZA-ALLERGAN-1501638US

PATIENT
  Age: 56 Year
  Sex: Female

DRUGS (3)
  1. ALPHAGAN PURITE [Suspect]
     Active Substance: BRIMONIDINE TARTRATE
     Indication: OPEN ANGLE GLAUCOMA
     Dosage: 1 GTT, BID
     Route: 047
     Dates: start: 20140205, end: 20150114
  2. LUMIGAN [Suspect]
     Active Substance: BIMATOPROST
     Indication: OPEN ANGLE GLAUCOMA
     Dosage: 2 GTT, UNK
     Route: 047
     Dates: start: 2012, end: 20150114
  3. BETAGAN [Suspect]
     Active Substance: LEVOBUNOLOL HYDROCHLORIDE
     Indication: PRODUCT USED FOR UNKNOWN INDICATION
     Dosage: 2 GTT, BID
     Route: 047
     Dates: start: 201208, end: 20150114

REACTIONS (9)
  - Reaction to preservatives [Unknown]
  - Eye irritation [Unknown]
  - Uveitis [Recovering/Resolving]
  - Intraocular pressure increased [Unknown]
  - Lacrimation increased [Unknown]
  - Noninfective conjunctivitis [Recovered/Resolved]
  - Lacrimation increased [Unknown]
  - Ocular hyperaemia [Unknown]
  - Conjunctivitis [Unknown]

NARRATIVE: CASE EVENT DATE: 20140628
